FAERS Safety Report 16170041 (Version 1)
Quarter: 2019Q2

REPORT INFORMATION
  Report Type: Spontaneous
  Country: US (occurrence: US)
  Receive Date: 20190305
  Receipt Date: 20190305
  Transmission Date: 20190711
  Serious: No
  Sender: FDA-Public Use
  Company Number: None

PATIENT
  Age: 32 Year
  Sex: Female

DRUGS (3)
  1. NALTREXONE [Concomitant]
     Active Substance: NALTREXONE
  2. ARMOUR THYROID [Concomitant]
     Active Substance: THYROID, PORCINE
  3. HEPARIN SODINJ 10000/MLPRESERVATIVE FREE [Suspect]
     Active Substance: HEPARIN SODIUM
     Dates: start: 201902

REACTIONS (4)
  - Injection site pain [None]
  - Product administration error [None]
  - Treatment noncompliance [None]
  - Physical product label issue [None]

NARRATIVE: CASE EVENT DATE: 20190221
